FAERS Safety Report 25733596 (Version 2)
Quarter: 2025Q4

REPORT INFORMATION
  Report Type: Spontaneous
  Country: CA (occurrence: CA)
  Receive Date: 20250828
  Receipt Date: 20251226
  Transmission Date: 20260118
  Serious: Yes (Life-Threatening, Hospitalization, Other)
  Sender: Kenvue
  Company Number: CA-KENVUE-20250808020

PATIENT
  Age: 21 Year

DRUGS (1)
  1. ACETAMINOPHEN [Suspect]
     Active Substance: ACETAMINOPHEN
     Indication: Product used for unknown indication
     Route: 065

REACTIONS (4)
  - Hepatic failure [Recovered/Resolved]
  - Toxicity to various agents [Recovered/Resolved]
  - Hepatic encephalopathy [Recovered/Resolved]
  - Mydriasis [Recovered/Resolved]
